FAERS Safety Report 7043381-5 (Version None)
Quarter: 2010Q4

REPORT INFORMATION
  Report Type: 
  Country: None (occurrence: None)
  Receive Date: 20101013
  Receipt Date: 20101007
  Transmission Date: 20110411
  Serious: Yes (Hospitalization)
  Sender: FDA-Public Use
  Company Number: GR-CVT-100632

PATIENT

DRUGS (5)
  1. RANEXA [Suspect]
     Indication: ANGINA PECTORIS
     Dosage: 375 MG, BID
     Route: 048
     Dates: start: 20100601, end: 20100101
  2. LOPRESOR                           /00376902/ [Concomitant]
  3. OLMETEC [Concomitant]
  4. MONOSORDIL [Concomitant]
  5. PLAVIX [Concomitant]

REACTIONS (4)
  - HEPATIC ENZYME INCREASED [None]
  - OEDEMA PERIPHERAL [None]
  - PRURITUS [None]
  - RASH [None]
